FAERS Safety Report 9214450 (Version 2)
Quarter: 2013Q2

REPORT INFORMATION
  Report Type: Spontaneous
  Country: US (occurrence: US)
  Receive Date: 20130405
  Receipt Date: 20130429
  Transmission Date: 20140414
  Serious: No
  Sender: FDA-Public Use
  Company Number: US-009507513-1304USA001541

PATIENT
  Sex: Female
  Weight: 69.39 kg

DRUGS (6)
  1. MIRALAX [Suspect]
     Indication: PRODUCT USED FOR UNKNOWN INDICATION
     Dosage: UNK, QAM
     Route: 048
     Dates: start: 201106
  2. MIRALAX [Suspect]
     Indication: MEDICAL OBSERVATION
  3. FELODIPINE [Concomitant]
     Indication: HYPERTENSION
  4. PROPRANOLOL HYDROCHLORIDE [Concomitant]
     Indication: HYPERTENSION
  5. LORAZEPAM [Concomitant]
     Indication: ANXIETY
  6. OMEPRAZOLE [Concomitant]
     Indication: GASTROOESOPHAGEAL REFLUX DISEASE

REACTIONS (3)
  - Abdominal pain upper [Unknown]
  - Malaise [Recovered/Resolved]
  - Incorrect drug administration duration [Unknown]
